FAERS Safety Report 14557290 (Version 1)
Quarter: 2018Q1

REPORT INFORMATION
  Report Type: Spontaneous
  Country: PL (occurrence: PL)
  Receive Date: 20180221
  Receipt Date: 20180221
  Transmission Date: 20180509
  Serious: Yes (Death, Other)
  Sender: FDA-Public Use
  Company Number: PL-OTSUKA-2018_004396

PATIENT
  Sex: Male
  Weight: 7 kg

DRUGS (4)
  1. CICLOSPORIN [Concomitant]
     Active Substance: CYCLOSPORINE
     Indication: PROPHYLAXIS AGAINST GRAFT VERSUS HOST DISEASE
     Dosage: 52.5 MG IN 0.5 DAY
     Route: 048
     Dates: start: 20170918, end: 20171113
  2. MYCOPHENOLATE MOFETIL. [Concomitant]
     Active Substance: MYCOPHENOLATE MOFETIL
     Indication: PROPHYLAXIS AGAINST GRAFT VERSUS HOST DISEASE
     Dosage: 120 MG IN 8 HOURS
     Route: 048
     Dates: start: 20170920, end: 20171113
  3. BUSILVEX [Suspect]
     Active Substance: BUSULFAN
     Indication: BONE MARROW CONDITIONING REGIMEN
     Dosage: 33.2 MG/DAY
     Route: 042
     Dates: start: 20170913, end: 20170916
  4. FLUDARABINE [Suspect]
     Active Substance: FLUDARABINE PHOSPHATE
     Indication: BONE MARROW CONDITIONING REGIMEN
     Dosage: 12.3 MG/DAY
     Route: 042
     Dates: start: 20170913, end: 20170917

REACTIONS (1)
  - Pneumonia mycoplasmal [Fatal]

NARRATIVE: CASE EVENT DATE: 20171114
